FAERS Safety Report 23244463 (Version 1)
Quarter: 2023Q4

REPORT INFORMATION
  Report Type: Other
  Country: CN (occurrence: None)
  Receive Date: 20231130
  Receipt Date: 20231130
  Transmission Date: 20240110
  Serious: Yes (Other)
  Sender: FDA-Public Use
  Company Number: CN-ROCHE-3464742

PATIENT

DRUGS (5)
  1. TRASTUZUMAB [Suspect]
     Active Substance: TRASTUZUMAB
     Indication: Breast cancer metastatic
     Dosage: ON THE FIRST DAY, 18 CYCLES
     Route: 041
  2. TRASTUZUMAB [Suspect]
     Active Substance: TRASTUZUMAB
     Route: 041
  3. TAMOXIFEN [Suspect]
     Active Substance: TAMOXIFEN
     Indication: Breast cancer metastatic
     Dosage: ON DAY 1, 18 CYCLES
     Route: 048
  4. LETROZOLE [Suspect]
     Active Substance: LETROZOLE
     Indication: Breast cancer metastatic
     Dosage: ON DAY 1, 18 CYCLES
     Route: 048
  5. ANASTROZOLE [Suspect]
     Active Substance: ANASTROZOLE
     Indication: Breast cancer metastatic
     Dosage: ON DAY 1, 18 CYCLES
     Route: 048

REACTIONS (4)
  - Myocardial ischaemia [Unknown]
  - Heart rate abnormal [Unknown]
  - Arrhythmia [Unknown]
  - Ejection fraction decreased [Unknown]
